FAERS Safety Report 10653167 (Version 4)
Quarter: 2015Q1

REPORT INFORMATION
  Report Type: Report from Study
  Country: ES (occurrence: ES)
  Receive Date: 20141215
  Receipt Date: 20150121
  Transmission Date: 20150720
  Serious: Yes (Death, Other)
  Sender: FDA-Public Use
  Company Number: ES-GLAXOSMITHKLINE-B1019150A

PATIENT
  Age: 63 Year
  Sex: Male
  Weight: 70 kg

DRUGS (7)
  1. IPILIMUMAB [Suspect]
     Active Substance: IPILIMUMAB
     Dosage: UNK
     Dates: start: 20140908
  2. TRAMETINIB [Suspect]
     Active Substance: TRAMETINIB
     Dosage: 2 UNK, UNK
     Dates: start: 20141006, end: 20141030
  3. DABRAFENIB [Suspect]
     Active Substance: DABRAFENIB
     Indication: METASTATIC MALIGNANT MELANOMA
     Dosage: 150 MG, BID
     Route: 048
     Dates: start: 20140602, end: 20140726
  4. IPILIMUMAB [Suspect]
     Active Substance: IPILIMUMAB
     Dosage: UNK
     Dates: start: 20140819
  5. TRAMETINIB [Suspect]
     Active Substance: TRAMETINIB
     Indication: METASTATIC MALIGNANT MELANOMA
     Dosage: 2 MG, QD
     Route: 048
     Dates: start: 20140602, end: 20140726
  6. DABRAFENIB [Suspect]
     Active Substance: DABRAFENIB
     Dosage: 150 UNK, UNK
     Dates: start: 20141006, end: 20141030
  7. RADIOTHERAPY [Concomitant]
     Active Substance: RADIATION THERAPY
     Dosage: UNK
     Dates: start: 20140818, end: 20140818

REACTIONS (4)
  - Pyrexia [Recovered/Resolved]
  - Hyperhidrosis [Not Recovered/Not Resolved]
  - Chills [Recovered/Resolved]
  - Intestinal perforation [Fatal]

NARRATIVE: CASE EVENT DATE: 20140716
